FAERS Safety Report 6985678-0 (Version None)
Quarter: 2010Q3

REPORT INFORMATION
  Report Type: 
  Country: None (occurrence: None)
  Receive Date: 20100915
  Receipt Date: 20100906
  Transmission Date: 20110219
  Serious: Yes (Hospitalization)
  Sender: FDA-Public Use
  Company Number: FR-ASTRAZENECA-2010SE42279

PATIENT
  Age: 76 Year
  Sex: Female

DRUGS (12)
  1. NEXIUM [Suspect]
     Route: 048
     Dates: start: 20100723, end: 20100724
  2. ZOLEDRONIC [Suspect]
  3. TOPALGIC [Suspect]
     Route: 048
     Dates: end: 20100724
  4. PERFALGAN [Suspect]
     Route: 042
     Dates: start: 20100724, end: 20100724
  5. DOLIPRANE [Suspect]
     Route: 048
  6. TANGANIL [Concomitant]
  7. AVLOCARDYL [Concomitant]
  8. METFORMIN [Concomitant]
  9. EZETROL [Concomitant]
  10. EDUCTYL [Concomitant]
  11. PRIMPERAN TAB [Concomitant]
  12. FORLAX [Concomitant]

REACTIONS (1)
  - CYTOLYTIC HEPATITIS [None]
